FAERS Safety Report 12872857 (Version 1)
Quarter: 2016Q4

REPORT INFORMATION
  Report Type: Spontaneous
  Country: US (occurrence: US)
  Receive Date: 20161021
  Receipt Date: 20161021
  Transmission Date: 20170207
  Serious: No
  Sender: FDA-Public Use
  Company Number: US-BAYER-2016-195457

PATIENT
  Age: 39 Year
  Sex: Female

DRUGS (6)
  1. NIFEDIPINE. [Suspect]
     Active Substance: NIFEDIPINE
     Dosage: 10 MG, BID
  2. ACARBOSE. [Suspect]
     Active Substance: ACARBOSE
     Dosage: 75 MG MG BEFORE EACH FEEDING
  3. NIFEDIPINE. [Suspect]
     Active Substance: NIFEDIPINE
     Dosage: 20 MG, BID
  4. ACARBOSE. [Suspect]
     Active Substance: ACARBOSE
     Dosage: 25 MG BEFORE EACH OF HER 6 MEALS PER DAY
  5. ACARBOSE. [Suspect]
     Active Substance: ACARBOSE
     Dosage: 50 MG BEFORE EACH FEEDING
  6. VERAPAMIL [Concomitant]
     Active Substance: VERAPAMIL HYDROCHLORIDE
     Dosage: 120 MG, DAILY

REACTIONS (3)
  - Weight increased [None]
  - Oedema peripheral [None]
  - Hypoglycaemia [None]
